FAERS Safety Report 4500969-0 (Version None)
Quarter: 2004Q4

REPORT INFORMATION
  Report Type: 
  Country: None (occurrence: None)
  Receive Date: 20041115
  Receipt Date: 20041020
  Transmission Date: 20050328
  Serious: Yes (Other)
  Sender: FDA-Public Use
  Company Number: BE-MERCK-0410BEL00022

PATIENT
  Sex: Female

DRUGS (3)
  1. VIOXX [Suspect]
     Indication: BACK PAIN
     Route: 048
  2. ERYTHROMYCIN STEARATE [Concomitant]
     Route: 065
  3. OMEPRAZOLE [Concomitant]
     Route: 048

REACTIONS (2)
  - MALAISE [None]
  - PALPITATIONS [None]
